FAERS Safety Report 9378455 (Version 2)
Quarter: 2013Q3

REPORT INFORMATION
  Report Type: Spontaneous
  Country: US (occurrence: US)
  Receive Date: 20130701
  Receipt Date: 20130814
  Transmission Date: 20140515
  Serious: Yes (Other)
  Sender: FDA-Public Use
  Company Number: US-JNJFOC-20130620777

PATIENT
  Age: 29 Year
  Sex: Female

DRUGS (2)
  1. ZYRTEC [Suspect]
     Route: 048
  2. ZYRTEC [Suspect]
     Indication: PRODUCT USED FOR UNKNOWN INDICATION
     Dosage: BEFORE BED.
     Route: 048
     Dates: start: 20031022, end: 20130531

REACTIONS (3)
  - Drug dependence [Recovering/Resolving]
  - Lethargy [Recovering/Resolving]
  - Withdrawal syndrome [Recovering/Resolving]
